FAERS Safety Report 24078169 (Version 1)
Quarter: 2024Q3

REPORT INFORMATION
  Report Type: Spontaneous
  Country: CH (occurrence: CH)
  Receive Date: 20240711
  Receipt Date: 20240711
  Transmission Date: 20241017
  Serious: Yes (Life-Threatening, Other)
  Sender: ALKEM
  Company Number: CH-ALKEM LABORATORIES LIMITED-CH-ALKEM-2024-14448

PATIENT
  Age: 33 Year
  Sex: Male

DRUGS (4)
  1. MYCOPHENOLATE MOFETIL [Suspect]
     Active Substance: MYCOPHENOLATE MOFETIL
     Indication: Immunosuppressant drug therapy
     Dosage: 2 GRAM, QD (MAINTENANCE THERAPY)
     Route: 065
  2. BASILIXIMAB [Suspect]
     Active Substance: BASILIXIMAB
     Indication: Immunosuppressant drug therapy
     Dosage: UNK (INDUCTION THERAPY)
     Route: 065
  3. CYCLOSPORINE [Suspect]
     Active Substance: CYCLOSPORINE
     Indication: Immunosuppressant drug therapy
     Dosage: UNK (MAINTENANCE THERAPY)
     Route: 065
  4. PREDNISOLONE [Suspect]
     Active Substance: PREDNISOLONE
     Indication: Immunosuppressant drug therapy
     Dosage: UNK (MAINTENANCE THERAPY)
     Route: 065

REACTIONS (6)
  - Delayed graft function [Recovered/Resolved]
  - Hydronephrosis [Recovered/Resolved]
  - Cytomegalovirus viraemia [Recovered/Resolved]
  - Ureteral neoplasm [Unknown]
  - Blood creatinine increased [Recovered/Resolved]
  - Haematuria [Recovered/Resolved]
